FAERS Safety Report 20950411 (Version 1)
Quarter: 2022Q2

REPORT INFORMATION
  Report Type: Spontaneous
  Country: US (occurrence: US)
  Receive Date: 20220613
  Receipt Date: 20220613
  Transmission Date: 20220721
  Serious: Yes (Other)
  Sender: FDA-Public Use
  Company Number: US-drreddys-LIT/USA/22/0151025

PATIENT
  Age: 85 Year
  Sex: Male

DRUGS (8)
  1. DECITABINE [Suspect]
     Active Substance: DECITABINE
     Indication: Acute myeloid leukaemia
  2. DECITABINE [Suspect]
     Active Substance: DECITABINE
     Dosage: CYCLE 4 WAS WITH DECITABINE ALONE
  3. DECITABINE [Suspect]
     Active Substance: DECITABINE
     Dosage: CYCLE 5
  4. VENETOCLAX [Suspect]
     Active Substance: VENETOCLAX
     Indication: Acute myeloid leukaemia
     Dosage: DOSE-REDUCED VENETOCLAX 100MG DAILY FOR 21 DAYS
  5. VENETOCLAX [Suspect]
     Active Substance: VENETOCLAX
     Dosage: 100MG FOR EACH CYCLE
  6. VENETOCLAX [Suspect]
     Active Substance: VENETOCLAX
     Dosage: A SHORTER DOSE OF 14 DAYS
  7. VENETOCLAX [Suspect]
     Active Substance: VENETOCLAX
     Dosage: CYCLE 5 WAS RESUMED WITH DECITABINE AND VENETOCLAX
  8. POSACONAZOLE [Concomitant]
     Active Substance: POSACONAZOLE
     Indication: Antifungal prophylaxis

REACTIONS (6)
  - Anaemia [Unknown]
  - Fatigue [Unknown]
  - Leukocytosis [Unknown]
  - Bacteraemia [Unknown]
  - Gastrointestinal haemorrhage [Unknown]
  - Thrombocytopenia [Unknown]
